FAERS Safety Report 5219198-0 (Version None)
Quarter: 2007Q1

REPORT INFORMATION
  Report Type: 
  Country: None (occurrence: None)
  Receive Date: 20070125
  Receipt Date: 20070118
  Transmission Date: 20070707
  Serious: Yes (Hospitalization)
  Sender: FDA-Public Use
  Company Number: 2007CG00130

PATIENT
  Age: 47 Year
  Sex: Female

DRUGS (5)
  1. SYMBICORT [Suspect]
     Indication: BRONCHITIS
     Dosage: 320/9 ?G PER DOSE, TWO INHALATIONS PER DAY
     Route: 055
  2. MONOZECLAR [Suspect]
     Indication: BRONCHITIS
     Route: 048
     Dates: start: 20061218, end: 20061225
  3. MEDROL [Suspect]
     Indication: BRONCHITIS
     Route: 048
     Dates: start: 20061218, end: 20061223
  4. CETIRIZINE HCL [Suspect]
     Indication: BRONCHITIS
     Route: 048
  5. PARACETAMOL [Concomitant]
     Indication: MIGRAINE

REACTIONS (1)
  - PERIPHERAL ISCHAEMIA [None]
